FAERS Safety Report 20125547 (Version 2)
Quarter: 2022Q1

REPORT INFORMATION
  Report Type: Spontaneous
  Country: GB (occurrence: GB)
  Receive Date: 20211129
  Receipt Date: 20220118
  Transmission Date: 20220423
  Serious: Yes (Hospitalization, Other)
  Sender: FDA-Public Use
  Company Number: GB-MYLANLABS-2021M1087910

PATIENT
  Sex: Male
  Weight: 74 kg

DRUGS (13)
  1. CLOZARIL [Suspect]
     Active Substance: CLOZAPINE
     Indication: Schizophrenia
     Dosage: 350 MILLIGRAM, QD
     Route: 048
     Dates: start: 20210629
  2. DIAZEPAM [Concomitant]
     Active Substance: DIAZEPAM
     Indication: Anxiety
     Dosage: 3 MILLIGRAM, TID
     Route: 048
  3. PROMETHAZINE [Concomitant]
     Active Substance: PROMETHAZINE HYDROCHLORIDE
     Indication: Anxiety
     Dosage: 25-50 MG PRN
     Route: 048
  4. OMEPRAZOLE [Concomitant]
     Active Substance: OMEPRAZOLE
     Indication: Prophylaxis
     Dosage: 20 MILLIGRAM, QD
     Route: 048
  5. HYPROMELLOSES [Concomitant]
     Active Substance: HYPROMELLOSES
     Indication: Dry eye
     Dosage: TWO DROP BD + PRN
     Route: 061
  6. DOCUSATE SODIUM [Concomitant]
     Active Substance: DOCUSATE SODIUM
     Indication: Constipation
     Dosage: 100 MILLIGRAM, PM
     Route: 048
  7. CHOLECALCIFEROL [Concomitant]
     Active Substance: CHOLECALCIFEROL
     Indication: Vitamin D deficiency
     Dosage: 50000 UNITS WEEKLY
     Route: 048
  8. FERROUS SULFATE [Concomitant]
     Active Substance: FERROUS SULFATE
     Indication: Anaemia
     Dosage: 200 MILLIGRAM, BID
     Route: 048
  9. SENNA [Concomitant]
     Active Substance: SENNA LEAF\SENNOSIDES\SENNOSIDES A AND B
     Indication: Constipation
     Dosage: 15 MILLIGRAM, PM
     Route: 048
  10. GLYCERIN [Concomitant]
     Active Substance: GLYCERIN
     Indication: Constipation
     Dosage: 4 GRAM, PRN
     Route: 054
  11. ACETAMINOPHEN [Concomitant]
     Active Substance: ACETAMINOPHEN
     Indication: Pain
     Dosage: 1 GRAM, PRN
     Route: 048
  12. NAPROXEN [Concomitant]
     Active Substance: NAPROXEN
     Indication: Pain
     Dosage: 250 MILLIGRAM, BID
     Route: 048
  13. MOVICOL [Concomitant]
     Active Substance: POLYETHYLENE GLYCOL 3350\POTASSIUM CHLORIDE\SODIUM BICARBONATE\SODIUM CHLORIDE
     Indication: Constipation
     Dosage: ONE SACHET PRN
     Route: 048

REACTIONS (4)
  - Sarcoidosis [Recovered/Resolved]
  - Renal impairment [Recovered/Resolved]
  - Drug level abnormal [Recovered/Resolved]
  - Hypercalcaemia [Recovering/Resolving]

NARRATIVE: CASE EVENT DATE: 20211021
